FAERS Safety Report 8544287-2 (Version None)
Quarter: 2012Q3

REPORT INFORMATION
  Report Type: 
  Country: None (occurrence: None)
  Receive Date: 20120719
  Receipt Date: 20120719
  Transmission Date: 20120928
  Serious: Yes (Life-Threatening)
  Sender: FDA-Public Use
  Company Number: None

PATIENT
  Age: 74 Year
  Sex: Female
  Weight: 70.3075 kg

DRUGS (2)
  1. AVELOX [Suspect]
     Indication: HYPOGLYCAEMIA
     Dosage: 400 MG  DAILY PO
     Dates: start: 20110302, end: 20110302
  2. GLYBURIDE [Suspect]
     Indication: PNEUMONIA
     Dosage: 10 MG  TWICE DAILY PO
     Route: 048
     Dates: start: 20110302, end: 20110302

REACTIONS (3)
  - UNRESPONSIVE TO STIMULI [None]
  - PNEUMONIA [None]
  - HYPOGLYCAEMIA [None]
